FAERS Safety Report 25142814 (Version 1)
Quarter: 2025Q1

REPORT INFORMATION
  Report Type: Report from Study
  Country: US (occurrence: US)
  Receive Date: 20250331
  Receipt Date: 20250331
  Transmission Date: 20250408
  Serious: Yes (Other)
  Sender: ABBVIE
  Company Number: US-ABBVIE-6196213

PATIENT
  Sex: Female

DRUGS (1)
  1. SKYRIZI [Suspect]
     Active Substance: RISANKIZUMAB-RZAA
     Indication: Crohn^s disease
     Route: 058
     Dates: start: 20221021

REACTIONS (5)
  - Large intestine perforation [Recovering/Resolving]
  - Depression [Recovering/Resolving]
  - Diarrhoea [Recovering/Resolving]
  - Anxiety [Recovering/Resolving]
  - Abdominal discomfort [Recovering/Resolving]
